FAERS Safety Report 8113132-1 (Version None)
Quarter: 2012Q1

REPORT INFORMATION
  Report Type: 
  Country: None (occurrence: None)
  Receive Date: 20120203
  Receipt Date: 20120202
  Transmission Date: 20120608
  Serious: No
  Sender: FDA-Public Use
  Company Number: US-TEVA-320006USA

PATIENT
  Sex: Female
  Weight: 62.198 kg

DRUGS (2)
  1. PLAN B ONE-STEP [Suspect]
     Indication: POST COITAL CONTRACEPTION
     Dosage: 1.5 MILLIGRAM;
     Route: 048
     Dates: start: 20120112, end: 20120112
  2. FLUOXETINE [Concomitant]
     Indication: ANXIETY
     Dosage: 10 MILLIGRAM;
     Route: 048
     Dates: start: 20100701

REACTIONS (4)
  - NAUSEA [None]
  - MENSTRUATION IRREGULAR [None]
  - BREAST TENDERNESS [None]
  - PELVIC PAIN [None]
